FAERS Safety Report 7497660-8 (Version None)
Quarter: 2011Q2

REPORT INFORMATION
  Report Type: 
  Country: None (occurrence: None)
  Receive Date: 20110523
  Receipt Date: 20110512
  Transmission Date: 20111010
  Serious: Yes (Other)
  Sender: FDA-Public Use
  Company Number: PHHY2011AT39803

PATIENT
  Age: 63 Year
  Sex: Female

DRUGS (3)
  1. METHOTREXATE [Suspect]
     Dosage: 20 MG, QW
     Dates: start: 20090501, end: 20101101
  2. METHOTREXATE [Suspect]
     Dosage: 20 MG, QW
     Dates: start: 20110401
  3. METHOTREXATE [Suspect]
     Dosage: 35 MG, QW
     Dates: start: 20101101, end: 20110201

REACTIONS (4)
  - GLOSSODYNIA [None]
  - PERIPHERAL COLDNESS [None]
  - PARAESTHESIA [None]
  - BURNING SENSATION [None]
